FAERS Safety Report 5422384-8 (Version None)
Quarter: 2007Q3

REPORT INFORMATION
  Report Type: 
  Country: None (occurrence: None)
  Receive Date: 20070822
  Receipt Date: 20070816
  Transmission Date: 20080115
  Serious: Yes (Hospitalization, Other)
  Sender: FDA-Public Use
  Company Number: A0671189A

PATIENT
  Sex: Male

DRUGS (2)
  1. COREG CR [Suspect]
     Dosage: 40MG PER DAY
     Route: 048
     Dates: start: 20070801
  2. UNKNOWN [Concomitant]

REACTIONS (1)
  - CARDIAC FAILURE [None]
